FAERS Safety Report 5623852-6 (Version None)
Quarter: 2008Q1

REPORT INFORMATION
  Report Type: 
  Country: None (occurrence: None)
  Receive Date: 20080212
  Receipt Date: 20080207
  Transmission Date: 20080703
  Serious: Yes (Death, Other)
  Sender: FDA-Public Use
  Company Number: US-GILEAD-2008-0015077

PATIENT
  Sex: Female
  Weight: 67.192 kg

DRUGS (10)
  1. LETAIRIS [Suspect]
     Indication: PULMONARY HYPERTENSION
     Route: 048
     Dates: start: 20070826
  2. REVATIO [Concomitant]
     Indication: PULMONARY HYPERTENSION
     Route: 048
  3. SPIRONOLACTONE [Concomitant]
     Indication: PULMONARY HYPERTENSION
     Route: 048
  4. COUMADIN [Concomitant]
     Indication: ANTICOAGULATION DRUG LEVEL
     Route: 048
  5. TOPROL [Concomitant]
     Indication: ESSENTIAL HYPERTENSION
     Route: 048
  6. CARTIA XT [Concomitant]
     Indication: ESSENTIAL HYPERTENSION
     Route: 048
  7. GEMFIBROZIL [Concomitant]
     Indication: HYPERCHOLESTEROLAEMIA
     Route: 048
  8. ZOCOR [Concomitant]
     Indication: HYPERCHOLESTEROLAEMIA
     Route: 048
  9. PREMARIN [Concomitant]
     Indication: OESTROGEN REPLACEMENT THERAPY
     Route: 048
  10. PREVACID [Concomitant]
     Indication: GASTROOESOPHAGEAL REFLUX DISEASE
     Route: 048

REACTIONS (2)
  - BLOOD POTASSIUM INCREASED [None]
  - DEATH [None]
